FAERS Safety Report 7961049-5 (Version None)
Quarter: 2011Q4

REPORT INFORMATION
  Report Type: 
  Country: None (occurrence: None)
  Receive Date: 20111207
  Receipt Date: 20111201
  Transmission Date: 20120403
  Serious: No
  Sender: FDA-Public Use
  Company Number: US-PFIZER INC-2011293649

PATIENT
  Age: 63 Year
  Sex: Female

DRUGS (3)
  1. SKELAXIN [Suspect]
     Indication: MUSCLE SPASMS
     Dosage: 800 MG, 4X/DAY
  2. SKELAXIN [Suspect]
  3. METAXALONE [Suspect]
     Dosage: UNK, 4X/DAY
     Dates: start: 20090101

REACTIONS (1)
  - DRUG INEFFECTIVE [None]
